FAERS Safety Report 12191585 (Version 6)
Quarter: 2016Q4

REPORT INFORMATION
  Report Type: Report from Study
  Country: JP (occurrence: JP)
  Receive Date: 20160318
  Receipt Date: 20161017
  Transmission Date: 20170207
  Serious: Yes (Hospitalization, Disabling)
  Sender: FDA-Public Use
  Company Number: JP-B.I. PHARMACEUTICALS,INC./RIDGEFIELD-2014-BI-15510NB

PATIENT
  Age: 69 Year
  Sex: Male
  Weight: 61.8 kg

DRUGS (6)
  1. PRAZAXA [Suspect]
     Active Substance: DABIGATRAN ETEXILATE MESYLATE
     Indication: ATRIAL FIBRILLATION
     Route: 048
     Dates: start: 20120802, end: 20130304
  2. PRAZAXA [Suspect]
     Active Substance: DABIGATRAN ETEXILATE MESYLATE
     Indication: THROMBOSIS PROPHYLAXIS
  3. OLMETEC [Suspect]
     Active Substance: OLMESARTAN MEDOXOMIL
     Indication: PRODUCT USED FOR UNKNOWN INDICATION
     Route: 048
     Dates: end: 20130314
  4. PRAZAXA [Suspect]
     Active Substance: DABIGATRAN ETEXILATE MESYLATE
     Indication: CEREBROVASCULAR ACCIDENT PROPHYLAXIS
  5. TENORMIN [Suspect]
     Active Substance: ATENOLOL
     Indication: ATRIAL FIBRILLATION
     Route: 048
  6. ZYLORIC [Suspect]
     Active Substance: ALLOPURINOL
     Indication: PRODUCT USED FOR UNKNOWN INDICATION
     Route: 048
     Dates: end: 20130314

REACTIONS (6)
  - Renal impairment [Recovered/Resolved]
  - Glomerulonephritis rapidly progressive [Recovered/Resolved with Sequelae]
  - Haematuria [Recovered/Resolved]
  - Renal tubular necrosis [Recovered/Resolved]
  - Haemorrhage subcutaneous [Recovered/Resolved with Sequelae]
  - Epistaxis [Recovered/Resolved]

NARRATIVE: CASE EVENT DATE: 20121201
